FAERS Safety Report 9838794 (Version 1)
Quarter: 2014Q1

REPORT INFORMATION
  Report Type: Report from Study
  Country: US (occurrence: US)
  Receive Date: 20140123
  Receipt Date: 20140123
  Transmission Date: 20141002
  Serious: Yes (Hospitalization, Other)
  Sender: FDA-Public Use
  Company Number: US-ALEXION PHARMACEUTICALS INC.-A201304895

PATIENT
  Age: 56 Year
  Sex: Female

DRUGS (2)
  1. SOLIRIS [Suspect]
     Indication: HAEMOLYTIC URAEMIC SYNDROME
     Dosage: 900 MG QW
     Route: 042
  2. SOLIRIS [Suspect]
     Dosage: 600 MG SUPPLEMENTAL
     Route: 042

REACTIONS (4)
  - Renal failure acute [Unknown]
  - Thrombotic microangiopathy [Unknown]
  - Cardiac disorder [Unknown]
  - Gastric ulcer [Unknown]
